FAERS Safety Report 13800746 (Version 1)
Quarter: 2017Q3

REPORT INFORMATION
  Report Type: Spontaneous
  Country: US (occurrence: US)
  Receive Date: 20170727
  Receipt Date: 20170727
  Transmission Date: 20171127
  Serious: No
  Sender: FDA-Public Use
  Company Number: US-TARO-2016TAR00963

PATIENT
  Age: 80 Year
  Sex: Female

DRUGS (1)
  1. FLUOCINONIDE CREAM [Suspect]
     Active Substance: FLUOCINONIDE
     Indication: PRURITUS

REACTIONS (1)
  - Drug ineffective [Unknown]
